FAERS Safety Report 13844587 (Version 2)
Quarter: 2017Q3

REPORT INFORMATION
  Report Type: Spontaneous
  Country: US (occurrence: US)
  Receive Date: 20170808
  Receipt Date: 20170825
  Transmission Date: 20171127
  Serious: Yes (Hospitalization, Other)
  Sender: FDA-Public Use
  Company Number: US-GILEAD-2017-0266452

PATIENT
  Age: 31 Year
  Sex: Male

DRUGS (5)
  1. KETAMINE [Concomitant]
     Active Substance: KETAMINE
  2. TRUVADA [Suspect]
     Active Substance: EMTRICITABINE\TENOFOVIR DISOPROXIL FUMARATE
     Indication: PROPHYLAXIS AGAINST HIV INFECTION
     Route: 065
  3. ECSTASY [Concomitant]
     Active Substance: MIDOMAFETAMINE
  4. GAMMA-HYDROXYBUTYRATE [Concomitant]
     Active Substance: 4-HYDROXYBUTANOIC ACID
  5. ROHIPNOL [Concomitant]
     Active Substance: FLUNITRAZEPAM

REACTIONS (1)
  - Cholecystitis infective [Recovered/Resolved]

NARRATIVE: CASE EVENT DATE: 20170308
